FAERS Safety Report 21750755 (Version 3)
Quarter: 2023Q1

REPORT INFORMATION
  Report Type: Report from Study
  Country: CA (occurrence: CA)
  Receive Date: 20221219
  Receipt Date: 20230223
  Transmission Date: 20230417
  Serious: Yes (Other)
  Sender: FDA-Public Use
  Company Number: CA-ABBVIE-22K-028-4318476-00

PATIENT
  Age: 50 Year
  Sex: Female

DRUGS (2)
  1. RINVOQ [Suspect]
     Active Substance: UPADACITINIB
     Indication: Rheumatoid arthritis
     Route: 048
     Dates: start: 20210511
  2. GABAPENTIN [Concomitant]
     Active Substance: GABAPENTIN
     Indication: Product used for unknown indication

REACTIONS (14)
  - Self-injurious ideation [Unknown]
  - Fibromyalgia [Unknown]
  - Pain [Unknown]
  - Hyperhidrosis [Not Recovered/Not Resolved]
  - Unevaluable event [Unknown]
  - Depression [Unknown]
  - Exostosis [Unknown]
  - Joint stiffness [Unknown]
  - Joint noise [Unknown]
  - Tooth loss [Unknown]
  - Attention deficit hyperactivity disorder [Unknown]
  - Tooth abscess [Unknown]
  - Pain in jaw [Not Recovered/Not Resolved]
  - Impaired healing [Unknown]

NARRATIVE: CASE EVENT DATE: 20220331
